FAERS Safety Report 4344349-X (Version None)
Quarter: 2004Q2

REPORT INFORMATION
  Report Type: 
  Country: None (occurrence: None)
  Receive Date: 20040419
  Receipt Date: 20040408
  Transmission Date: 20050107
  Serious: Yes (Life-Threatening, Hospitalization)
  Sender: FDA-Public Use
  Company Number: 2004208337DE

PATIENT
  Age: 35 Year
  Sex: Female

DRUGS (1)
  1. VANTIN [Suspect]
     Indication: PNEUMONIA
     Dosage: 400 MG, DAILY, ORAL
     Route: 048
     Dates: start: 20031114, end: 20031124

REACTIONS (2)
  - CIRCULATORY COLLAPSE [None]
  - CLOSTRIDIUM COLITIS [None]
